FAERS Safety Report 9027098 (Version 3)
Quarter: 2014Q1

REPORT INFORMATION
  Report Type: Report from Study
  Country: US (occurrence: US)
  Receive Date: 20130123
  Receipt Date: 20140326
  Transmission Date: 20141002
  Serious: Yes (Hospitalization)
  Sender: FDA-Public Use
  Company Number: US-BIOMARINAP-US-2013-100193

PATIENT
  Age: 5 Year
  Sex: Male
  Weight: 16.8 kg

DRUGS (7)
  1. NAGLAZYME [Suspect]
     Indication: MUCOPOLYSACCHARIDOSIS VI
     Dosage: 1 MG/KG, QW
     Route: 041
     Dates: start: 20060523
  2. CEFTRIAXONE [Concomitant]
     Indication: PRODUCT USED FOR UNKNOWN INDICATION
  3. ALBUTEROL                          /00139501/ [Concomitant]
     Indication: PRODUCT USED FOR UNKNOWN INDICATION
  4. AZITHROMYCIN [Concomitant]
     Indication: PREMEDICATION
     Route: 048
  5. CEFTRIAXONE [Concomitant]
     Indication: PREMEDICATION
     Route: 048
  6. ALBUTEROL                          /00139501/ [Concomitant]
     Indication: PREMEDICATION
     Dosage: UNK, PRN
  7. OXYGEN [Concomitant]
     Indication: PREMEDICATION

REACTIONS (1)
  - Pneumonia [Recovered/Resolved]
